FAERS Safety Report 6396191-6 (Version None)
Quarter: 2009Q4

REPORT INFORMATION
  Report Type: 
  Country: None (occurrence: None)
  Receive Date: 20091011
  Receipt Date: 20090929
  Transmission Date: 20100525
  Serious: Yes (Hospitalization)
  Sender: FDA-Public Use
  Company Number: PHHY2009JP42133

PATIENT
  Age: 77 Year
  Sex: Male

DRUGS (3)
  1. ZOMETA [Suspect]
     Indication: BONE LESION
     Dosage: 4MG (PER ADMINISTRATION)
     Route: 042
     Dates: start: 20070501
  2. DECADRON [Concomitant]
     Route: 048
  3. ZOLADEX [Concomitant]
     Route: 042

REACTIONS (4)
  - HAEMORRHAGE [None]
  - OSTEOMYELITIS [None]
  - PAIN [None]
  - SWELLING [None]
